FAERS Safety Report 8322643 (Version 2)
Quarter: 2014Q4

REPORT INFORMATION
  Report Type: Spontaneous
  Country: US (occurrence: US)
  Receive Date: 20100113
  Receipt Date: 20141104
  Transmission Date: 20150529
  Serious: Yes (Death)
  Sender: FDA-Public Use
  Company Number: US-BAYER-201010550GPV

PATIENT
  Age: 58 Year
  Sex: Male

DRUGS (5)
  1. IBUPROFEN. [Suspect]
     Active Substance: IBUPROFEN
     Indication: PRODUCT USED FOR UNKNOWN INDICATION
  2. ACETAMINOPHEN/OPIOID [Suspect]
     Active Substance: ACETAMINOPHEN\OPIUM ALKALOIDS, HYDROCHLORIDES
     Indication: PRODUCT USED FOR UNKNOWN INDICATION
  3. GLYPHOSATE [Suspect]
     Active Substance: GLYPHOSATE
     Indication: PRODUCT USED FOR UNKNOWN INDICATION
  4. PARACETAMOL + DIPHENHYDRAMINE [Suspect]
     Active Substance: ACETAMINOPHEN\DIPHENHYDRAMINE
  5. SIMVASTATIN. [Suspect]
     Active Substance: SIMVASTATIN
     Indication: PRODUCT USED FOR UNKNOWN INDICATION

REACTIONS (1)
  - Toxicity to various agents [Fatal]
